FAERS Safety Report 7401587-7 (Version None)
Quarter: 2011Q2

REPORT INFORMATION
  Report Type: 
  Country: None (occurrence: None)
  Receive Date: 20110408
  Receipt Date: 20110331
  Transmission Date: 20111010
  Serious: No
  Sender: FDA-Public Use
  Company Number: US-BIOGENIDEC-2010BI016847

PATIENT
  Sex: Female

DRUGS (1)
  1. TYSABRI [Suspect]
     Indication: MULTIPLE SCLEROSIS
     Route: 042
     Dates: start: 20100330

REACTIONS (8)
  - BALANCE DISORDER [None]
  - DIZZINESS [None]
  - TEMPERATURE INTOLERANCE [None]
  - HEADACHE [None]
  - FALL [None]
  - NAUSEA [None]
  - FATIGUE [None]
  - VOMITING [None]
